FAERS Safety Report 20226022 (Version 1)
Quarter: 2021Q4

REPORT INFORMATION
  Report Type: Spontaneous
  Country: US (occurrence: US)
  Receive Date: 20211224
  Receipt Date: 20211224
  Transmission Date: 20220303
  Serious: Yes (Other)
  Sender: FDA-Public Use
  Company Number: US-ALEMBIC PHARMACUETICALS LIMITED-2021SCAL000549

PATIENT
  Sex: Female

DRUGS (1)
  1. BIMATOPROST [Suspect]
     Active Substance: BIMATOPROST
     Indication: Product used for unknown indication
     Dosage: 1 DROP PER EYE LID
     Route: 061

REACTIONS (3)
  - Eye infection [Unknown]
  - Erythema of eyelid [Unknown]
  - Eye irritation [Unknown]
